FAERS Safety Report 11029156 (Version 1)
Quarter: 2015Q2

REPORT INFORMATION
  Report Type: Spontaneous
  Country: US (occurrence: US)
  Receive Date: 20150415
  Receipt Date: 20150415
  Transmission Date: 20150821
  Serious: Yes (Hospitalization)
  Sender: FDA-Public Use
  Company Number: PHHY2015US041705

PATIENT
  Age: 44 Year
  Sex: Male

DRUGS (2)
  1. GINSENG NOS [Interacting]
     Active Substance: HERBALS
     Indication: PRODUCT USED FOR UNKNOWN INDICATION
  2. LAMOTRIGINE. [Suspect]
     Active Substance: LAMOTRIGINE
     Indication: GENERALISED TONIC-CLONIC SEIZURE
     Dosage: 150 MG, BID
     Route: 065

REACTIONS (8)
  - Rash pruritic [Unknown]
  - Leukocytosis [Unknown]
  - Hepatic enzyme increased [Unknown]
  - Drug interaction [Unknown]
  - Myalgia [Unknown]
  - Drug reaction with eosinophilia and systemic symptoms [Unknown]
  - Eosinophilia [Unknown]
  - Headache [Unknown]
